FAERS Safety Report 18249981 (Version 2)
Quarter: 2021Q1

REPORT INFORMATION
  Report Type: Spontaneous
  Country: JP (occurrence: JP)
  Receive Date: 20200909
  Receipt Date: 20210216
  Transmission Date: 20210419
  Serious: Yes (Death)
  Sender: FDA-Public Use
  Company Number: JP-TAIHO ONCOLOGY  INC-JPTT200274

PATIENT
  Age: 83 Year
  Sex: Male
  Weight: 54 kg

DRUGS (8)
  1. AVASTIN [Suspect]
     Active Substance: BEVACIZUMAB
     Indication: COLORECTAL CANCER METASTATIC
     Dosage: 2 DOSING DAYS
     Route: 041
     Dates: end: 20200811
  2. LANSOPRAZOLE OD [Concomitant]
     Active Substance: LANSOPRAZOLE
     Route: 048
  3. BAYASPIRIN [Concomitant]
     Active Substance: ASPIRIN
     Route: 048
  4. OXINORM [Concomitant]
     Route: 048
  5. SIGMART [Concomitant]
     Active Substance: NICORANDIL
     Route: 048
  6. MAINTATE [Concomitant]
     Active Substance: BISOPROLOL FUMARATE
     Route: 048
  7. LONSURF [Suspect]
     Active Substance: TIPIRACIL HYDROCHLORIDE\TRIFLURIDINE
     Indication: COLORECTAL CANCER METASTATIC
     Dosage: ON DAYS 1?5 AND 8?12
     Route: 048
     Dates: start: 20200727, end: 20200807
  8. OXYCODONE [Concomitant]
     Active Substance: OXYCODONE
     Route: 048

REACTIONS (3)
  - Myelosuppression [Fatal]
  - Pneumonia [Fatal]
  - Rectal cancer [Fatal]

NARRATIVE: CASE EVENT DATE: 20200816
